FAERS Safety Report 6966383-3 (Version None)
Quarter: 2010Q3

REPORT INFORMATION
  Report Type: 
  Country: None (occurrence: None)
  Receive Date: 20100903
  Receipt Date: 20100826
  Transmission Date: 20110219
  Serious: Yes (Hospitalization, Other)
  Sender: FDA-Public Use
  Company Number: AU-AMGEN-QUU424179

PATIENT
  Sex: Female
  Weight: 74 kg

DRUGS (10)
  1. NEULASTA [Suspect]
     Indication: CHEMOTHERAPY
     Route: 058
     Dates: start: 20100522, end: 20100724
  2. TAXOTERE [Concomitant]
     Dates: start: 20100416, end: 20100812
  3. ADRIAMYCIN PFS [Concomitant]
     Dates: start: 20100416, end: 20100812
  4. CYCLOPHOSPHAMIDE [Concomitant]
     Dates: start: 20100416, end: 20100812
  5. METFORMIN [Concomitant]
  6. NORVASC [Concomitant]
  7. DEXAMETHASONE [Concomitant]
     Dates: start: 20100416, end: 20100812
  8. ONDANSETRON [Concomitant]
     Dates: start: 20100416, end: 20100812
  9. EMEND [Concomitant]
     Dates: start: 20100416, end: 20100812
  10. DIAMICRON [Concomitant]

REACTIONS (4)
  - FALL [None]
  - FEBRILE NEUTROPENIA [None]
  - GASTROINTESTINAL DISORDER [None]
  - THERAPEUTIC RESPONSE DECREASED [None]
